FAERS Safety Report 19087341 (Version 1)
Quarter: 2021Q2

REPORT INFORMATION
  Report Type: Spontaneous
  Country: JP (occurrence: JP)
  Receive Date: 20210402
  Receipt Date: 20210402
  Transmission Date: 20210717
  Serious: Yes (Other)
  Sender: FDA-Public Use
  Company Number: JP-EXELA PHARMA SCIENCES, LLC-2021EXL00004

PATIENT
  Age: 36 Year
  Sex: Female

DRUGS (2)
  1. MAGNESIUM SULFATE. [Suspect]
     Active Substance: MAGNESIUM SULFATE
     Indication: PREMATURE DELIVERY
     Route: 065
  2. RITODRINE [Concomitant]
     Active Substance: RITODRINE
     Indication: PREMATURE DELIVERY
     Route: 065

REACTIONS (2)
  - Fracture [Unknown]
  - Osteoporosis [Unknown]
